FAERS Safety Report 7334459-7 (Version None)
Quarter: 2011Q1

REPORT INFORMATION
  Report Type: 
  Country: None (occurrence: None)
  Receive Date: 20110307
  Receipt Date: 20110222
  Transmission Date: 20110831
  Serious: Yes (Other)
  Sender: FDA-Public Use
  Company Number: DE-AMGEN-DEUSP2011010982

PATIENT
  Sex: Female

DRUGS (3)
  1. ANTIBIOTICS [Suspect]
  2. GLUCOCORTICOIDS [Concomitant]
  3. ENBREL [Suspect]
     Indication: PRODUCT USED FOR UNKNOWN INDICATION
     Dosage: 50 MG, WEEKLY

REACTIONS (7)
  - DIZZINESS [None]
  - PRURITUS [None]
  - INJECTION SITE URTICARIA [None]
  - LYMPHOEDEMA [None]
  - INJECTION SITE ERYTHEMA [None]
  - BRONCHITIS [None]
  - HEADACHE [None]
